FAERS Safety Report 8908440 (Version 1)
Quarter: 2012Q4

REPORT INFORMATION
  Report Type: 
  Country: US (occurrence: US)
  Receive Date: 20121114
  Receipt Date: 20121114
  Transmission Date: 20130627
  Serious: Yes (Other)
  Sender: FDA-Public Use
  Company Number: US-PFIZER INC-2012279898

PATIENT
  Sex: Male

DRUGS (1)
  1. R-GENE [Suspect]
     Indication: GONADOTROPHIN RELEASING HORMONE STIMULATION TEST
     Dosage: UNK
     Route: 042

REACTIONS (6)
  - Urinary bladder haemorrhage [Unknown]
  - Haematuria [Unknown]
  - Kidney enlargement [Unknown]
  - Dysuria [Unknown]
  - Micturition urgency [Unknown]
  - Pollakiuria [Unknown]
